FAERS Safety Report 8718373 (Version 5)
Quarter: 2012Q4

REPORT INFORMATION
  Report Type: Report from Study
  Country: US (occurrence: US)
  Receive Date: 20120810
  Receipt Date: 20120920
  Transmission Date: 20130627
  Serious: Yes (Other)
  Sender: FDA-Public Use
  Company Number: US-CELGENEUS-163-50794-12080449

PATIENT
  Age: 59 None
  Sex: Female

DRUGS (40)
  1. CARVEDILOL [Concomitant]
     Indication: BLOOD PRESSURE
     Dosage: 6.25 Milligram
     Route: 048
  2. LISINOPRIL [Concomitant]
     Indication: BLOOD PRESSURE
     Dosage: 5 Milligram
     Route: 048
  3. LASIX [Concomitant]
     Indication: FLUID RETENTION
     Dosage: 40 Milligram
     Route: 048
  4. AMIODARONE [Concomitant]
     Indication: DRUG USE FOR UNKNOWN INDICATION
     Dosage: 400 Milligram
     Route: 048
  5. CEFPODOXIME [Concomitant]
     Indication: ANTI-INFECTIVE THERAPY
     Dosage: 400 Milligram
     Route: 048
  6. OXYCODONE [Concomitant]
     Indication: PAIN
     Dosage: 1 or 2 tablets
     Route: 048
  7. ZOFRAN [Concomitant]
     Indication: NAUSEA
     Dosage: 24 Milligram
     Route: 048
  8. ZOFRAN [Concomitant]
     Indication: VOMITING
  9. AQUAPHOR [Concomitant]
     Indication: RASH
     Dosage: 1 application
     Route: 061
  10. BACTRIM DS [Concomitant]
     Indication: ANTI-INFECTIVE THERAPY
     Dosage: 800/160mg
     Route: 048
     Dates: start: 20120803
  11. CANCIDAS [Concomitant]
     Indication: ANTIFUNGAL PROPHYLAXIS
     Dosage: 50 m
     Route: 041
  12. CIPROFLOXACIN [Concomitant]
     Indication: ANTI-INFECTIVE THERAPY
     Dosage: 1000 Milligram
     Route: 041
     Dates: start: 20120803
  13. PROTONIX [Concomitant]
     Indication: ACID REFLUX (OESOPHAGEAL)
     Dosage: 40 Milligram
     Route: 048
  14. METOPROLOL TARTRATE [Concomitant]
     Indication: DRUG USE FOR UNKNOWN INDICATION
     Dosage: 50 Milligram
     Route: 065
  15. HYDROXYUREA [Concomitant]
     Indication: DRUG USE FOR UNKNOWN INDICATION
     Dosage: 1 Gram
     Route: 065
  16. IMM-KINE [Concomitant]
     Indication: DRUG USE FOR UNKNOWN INDICATION
     Route: 065
  17. RESVERATROL [Concomitant]
     Indication: DRUG USE FOR UNKNOWN INDICATION
     Route: 065
  18. EPA-DHA [Concomitant]
     Indication: DRUG USE FOR UNKNOWN INDICATION
     Dosage: 6:1
     Route: 065
  19. BRM-4 [Concomitant]
     Indication: DRUG USE FOR UNKNOWN INDICATION
     Route: 065
  20. ARTEMISININ IODORAO [Concomitant]
     Indication: DRUG USE FOR UNKNOWN INDICATION
     Route: 065
  21. IMMUBOOST [Concomitant]
     Indication: DRUG USE FOR UNKNOWN INDICATION
     Route: 065
  22. SILVER 1500 [Concomitant]
     Indication: DRUG USE FOR UNKNOWN INDICATION
     Route: 065
  23. ITIRES [Concomitant]
     Indication: DRUG USE FOR UNKNOWN INDICATION
     Route: 065
  24. DETOX [Concomitant]
     Indication: DRUG USE FOR UNKNOWN INDICATION
     Route: 065
  25. DALECTRO-N [Concomitant]
     Indication: DRUG USE FOR UNKNOWN INDICATION
     Route: 065
  26. PROBIOTIC HMF [Concomitant]
     Indication: DRUG USE FOR UNKNOWN INDICATION
     Route: 065
  27. ULTRA FLORAL IB [Concomitant]
     Indication: DRUG USE FOR UNKNOWN INDICATION
     Route: 065
  28. ISO D3 [Concomitant]
     Indication: DRUG USE FOR UNKNOWN INDICATION
     Route: 065
  29. VIDAZA [Suspect]
     Indication: ACUTE MYELOID LEUKEMIA
     Dosage: 75 milligram/sq. meter
     Route: 041
     Dates: start: 20111111, end: 20111117
  30. VIDAZA [Suspect]
     Dosage: 75 milligram/sq. meter
     Route: 041
     Dates: start: 20111208, end: 20111214
  31. VIDAZA [Suspect]
     Dosage: 75 milligram/sq. meter
     Route: 041
     Dates: start: 20120120, end: 20120126
  32. VIDAZA [Suspect]
     Dosage: 75 milligram/sq. meter
     Route: 041
     Dates: end: 20120515
  33. SORAFENIB [Suspect]
     Indication: ACUTE MYELOID LEUKEMIA
     Dosage: 800 Milligram
     Route: 048
     Dates: start: 20111111, end: 20120206
  34. FLUCONAZOLE [Concomitant]
     Indication: DRUG USE FOR UNKNOWN INDICATION
     Route: 065
  35. KLOR-CON [Concomitant]
     Indication: DRUG USE FOR UNKNOWN INDICATION
     Route: 065
  36. LEVAQUIN [Concomitant]
     Indication: DRUG USE FOR UNKNOWN INDICATION
     Route: 065
  37. VALTREX [Concomitant]
     Indication: ANTIVIRAL PROPHYLAXIS
     Dosage: 500 Milligram
     Route: 048
  38. XOPENEX [Concomitant]
     Indication: WHEEZING
     Dosage: 2 puffs
     Route: 048
  39. XOPENEX [Concomitant]
     Indication: SHORTNESS OF BREATH
  40. SPIRONOLACTONE [Concomitant]
     Indication: DRUG USE FOR UNKNOWN INDICATION
     Dosage: 25 Milligram
     Route: 048

REACTIONS (1)
  - Cardiomyopathy [Not Recovered/Not Resolved]
